FAERS Safety Report 23641141 (Version 1)
Quarter: 2024Q1

REPORT INFORMATION
  Report Type: Spontaneous
  Country: DE (occurrence: DE)
  Receive Date: 20240318
  Receipt Date: 20240318
  Transmission Date: 20240409
  Serious: Yes (Hospitalization)
  Sender: FDA-Public Use
  Company Number: None

PATIENT
  Age: 66 Year
  Sex: Male
  Weight: 61.3 kg

DRUGS (4)
  1. MYFORTIC [Suspect]
     Active Substance: MYCOPHENOLATE SODIUM
     Indication: Renal transplant
     Dosage: UNK (UNK, START DATE: 08-NOV-2016)
     Route: 065
     Dates: start: 20161108
  2. CELLCEPT [Suspect]
     Active Substance: MYCOPHENOLATE MOFETIL
     Indication: Renal transplant
     Dosage: 1000 MG (1000 MG, UNK, START DATE: 19-AUG-2015)
     Route: 048
     Dates: start: 20150819, end: 20161028
  3. PROGRAF [Suspect]
     Active Substance: TACROLIMUS
     Indication: Renal transplant
     Dosage: 6 MG, QD (3 MG, BID (6 MG, QD), START DATE: 19-AUG-2015)
     Route: 048
     Dates: start: 20150819
  4. PREDNISONE [Concomitant]
     Active Substance: PREDNISONE
     Indication: Renal transplant
     Dosage: 5 MG
     Route: 048
     Dates: start: 20150819, end: 20161028

REACTIONS (5)
  - Gastroenteritis norovirus [Recovered/Resolved]
  - Gastroenteritis norovirus [Recovered/Resolved]
  - Renal impairment [Recovered/Resolved]
  - Haemolysis [Recovering/Resolving]
  - Diarrhoea [Recovered/Resolved]

NARRATIVE: CASE EVENT DATE: 20161026
